FAERS Safety Report 17140811 (Version 2)
Quarter: 2020Q1

REPORT INFORMATION
  Report Type: Report from Study
  Country: US (occurrence: US)
  Receive Date: 20191211
  Receipt Date: 20200124
  Transmission Date: 20200409
  Serious: Yes (Hospitalization, Other)
  Sender: FDA-Public Use
  Company Number: US-ROCHE-2360675

PATIENT
  Age: 46 Year
  Sex: Male
  Weight: 72.7 kg

DRUGS (2)
  1. ATEZOLIZUMAB. [Suspect]
     Active Substance: ATEZOLIZUMAB
     Indication: TRANSITIONAL CELL CARCINOMA
     Dosage: MOST RECENT DOSE ON 18/JUN/2019
     Route: 042
     Dates: start: 20190611
  2. CYT 107 [INTERLEUKIN-7 HUMAN RECOMBINANT] [Suspect]
     Active Substance: INTERLEUKIN-7 HUMAN RECOMBINANT
     Indication: TRANSITIONAL CELL CARCINOMA
     Dosage: MOST RECENT DOSE ON 02/JUL/2019 (3040 MCG)
     Route: 030
     Dates: start: 20190611

REACTIONS (7)
  - Back pain [Recovering/Resolving]
  - Anaemia [Unknown]
  - Hyperkalaemia [Recovered/Resolved]
  - Hypercalcaemia [Unknown]
  - Haematuria [Recovered/Resolved]
  - Hyponatraemia [Recovered/Resolved]
  - Spinal fracture [Unknown]

NARRATIVE: CASE EVENT DATE: 20190703
